FAERS Safety Report 11250822 (Version 1)
Quarter: 2015Q3

REPORT INFORMATION
  Report Type: Spontaneous
  Country: US (occurrence: US)
  Receive Date: 20150708
  Receipt Date: 20150708
  Transmission Date: 20151125
  Serious: No
  Sender: FDA-Public Use
  Company Number: US-ELI_LILLY_AND_COMPANY-US201105002621

PATIENT
  Age: 54 Year
  Sex: Male

DRUGS (1)
  1. PROZAC [Suspect]
     Active Substance: FLUOXETINE HYDROCHLORIDE
     Indication: DEPRESSION

REACTIONS (7)
  - Fatigue [Unknown]
  - Apathy [Unknown]
  - Sexual dysfunction [Unknown]
  - Depressed mood [Unknown]
  - Insomnia [Unknown]
  - Hypokinesia [Unknown]
  - Bradyphrenia [Unknown]
